FAERS Safety Report 21242967 (Version 1)
Quarter: 2022Q3

REPORT INFORMATION
  Report Type: Spontaneous
  Country: CN (occurrence: None)
  Receive Date: 20220823
  Receipt Date: 20220823
  Transmission Date: 20221027
  Serious: Yes (Other)
  Sender: FDA-Public Use
  Company Number: CN-ROCHE-3166276

PATIENT
  Age: 8 Year
  Sex: Male
  Weight: 48 kg

DRUGS (1)
  1. MABTHERA [Suspect]
     Active Substance: RITUXIMAB
     Indication: Nephrotic syndrome
     Route: 041
     Dates: start: 20220712, end: 20220712

REACTIONS (2)
  - Laryngeal oedema [Recovered/Resolved]
  - Off label use [Unknown]

NARRATIVE: CASE EVENT DATE: 20220712
